FAERS Safety Report 7926906-4 (Version None)
Quarter: 2011Q4

REPORT INFORMATION
  Report Type: 
  Country: None (occurrence: None)
  Receive Date: 20111118
  Receipt Date: 20111114
  Transmission Date: 20120403
  Serious: Yes (Disabling, Other)
  Sender: FDA-Public Use
  Company Number: JP-PFIZER INC-2011278691

PATIENT
  Age: 64 Year
  Sex: Male

DRUGS (3)
  1. XALATAN [Suspect]
     Indication: GLAUCOMA
     Dosage: IN RIGHT EYE
     Route: 047
  2. COSOPT [Concomitant]
     Indication: GLAUCOMA
     Dosage: IN LEFT EYE
  3. XALATAN [Suspect]
     Dosage: 1 GTT, 1X/DAY (BOTH EYES)
     Route: 047
     Dates: end: 20111031

REACTIONS (3)
  - VISUAL ACUITY REDUCED [None]
  - CYSTOID MACULAR OEDEMA [None]
  - DIABETIC RETINAL OEDEMA [None]
